FAERS Safety Report 9777008 (Version 2)
Quarter: 2015Q4

REPORT INFORMATION
  Report Type: Report from Study
  Country: US (occurrence: US)
  Receive Date: 20131221
  Receipt Date: 20151007
  Transmission Date: 20160305
  Serious: Yes (Other)
  Sender: FDA-Public Use
  Company Number: US-ROCHE-1322347

PATIENT
  Sex: Male

DRUGS (2)
  1. LUCENTIS [Suspect]
     Active Substance: RANIBIZUMAB
     Indication: NEOVASCULAR AGE-RELATED MACULAR DEGENERATION
     Dosage: 1 PER MONTH
     Route: 065
     Dates: start: 2011
  2. COUMADIN [Concomitant]
     Active Substance: WARFARIN SODIUM
     Dosage: (DOSE DEPENDENT ON PROTIME AND WEIGHT, SEE B5)
     Route: 065

REACTIONS (4)
  - Facial bones fracture [Unknown]
  - Fall [Unknown]
  - Cerebral haemorrhage [Unknown]
  - Upper limb fracture [Unknown]
